FAERS Safety Report 4321016-X (Version None)
Quarter: 2004Q1

REPORT INFORMATION
  Report Type: 
  Country: None (occurrence: None)
  Receive Date: 20040318
  Receipt Date: 20040308
  Transmission Date: 20041129
  Serious: No
  Sender: FDA-Public Use
  Company Number: FR-SHR-04-020020

PATIENT
  Age: 43 Year
  Sex: Female
  Weight: 54 kg

DRUGS (2)
  1. MIRENA [Suspect]
     Indication: CONTRACEPTION
     Dosage: 20 UG/DAY, CONT, INTRA-UTERINE
     Route: 015
     Dates: start: 20041204
  2. DOSTINEX [Concomitant]

REACTIONS (2)
  - CONDITION AGGRAVATED [None]
  - MENINGIOMA [None]
